FAERS Safety Report 7355362-2 (Version None)
Quarter: 2011Q1

REPORT INFORMATION
  Report Type: 
  Country: None (occurrence: None)
  Receive Date: 20110316
  Receipt Date: 20110311
  Transmission Date: 20110831
  Serious: Yes (Death, Hospitalization)
  Sender: FDA-Public Use
  Company Number: DE-ROCHE-763496

PATIENT
  Sex: Male
  Weight: 89 kg

DRUGS (11)
  1. CAMPTOSAR [Suspect]
     Indication: COLORECTAL CANCER
     Dosage: FREQUENCY: ONCE, FORM: INFUSION, D1 D21
     Route: 042
     Dates: start: 20110216, end: 20110216
  2. BISOPROLOL [Concomitant]
     Dates: start: 20090101, end: 20110214
  3. CHARCOAL/SORBITOL [Concomitant]
     Dosage: 6 TABLETS
     Dates: start: 20110216
  4. CAPECITABINE [Suspect]
     Indication: COLORECTAL CANCER
     Dosage: D1 D14 Q 21
     Route: 048
     Dates: start: 20110216, end: 20110228
  5. FORTECORTIN [Concomitant]
     Dates: start: 20110216, end: 20110216
  6. PREDNISOLONE [Concomitant]
     Dates: start: 20110221, end: 20110301
  7. ATROPIN [Concomitant]
     Dosage: ATROPINE SULFATE, DAILY DOSE: 1/2 AMP
     Dates: start: 20110216, end: 20110216
  8. BAYOTENSIN [Concomitant]
     Dates: start: 20110216, end: 20110216
  9. RAMIPRIL [Concomitant]
     Dates: start: 20110215, end: 20110301
  10. BEVACIZUMAB [Suspect]
     Indication: COLORECTAL CANCER
     Dosage: FREQUECY: ONCE, FORM: INFUSION, BW DI Q21
     Route: 042
     Dates: start: 20110216, end: 20110216
  11. KEVATRIL [Concomitant]
     Dosage: 1 AMPULE
     Dates: start: 20110216, end: 20110216

REACTIONS (2)
  - INTESTINAL ISCHAEMIA [None]
  - ILEUS [None]
